FAERS Safety Report 15575975 (Version 1)
Quarter: 2018Q4

REPORT INFORMATION
  Report Type: Spontaneous
  Country: DE (occurrence: DE)
  Receive Date: 20181101
  Receipt Date: 20181101
  Transmission Date: 20190205
  Serious: Yes (Other)
  Sender: FDA-Public Use
  Company Number: DE-TEVA-2018-DE-970829

PATIENT
  Age: 74 Year
  Sex: Female

DRUGS (2)
  1. CEFTRIAXON [Suspect]
     Active Substance: CEFTRIAXONE
     Indication: BILE DUCT STONE
     Route: 065
     Dates: start: 201808
  2. TERBINAFINE. [Suspect]
     Active Substance: TERBINAFINE
     Indication: ONYCHOMYCOSIS
     Route: 065
     Dates: end: 20180821

REACTIONS (2)
  - Jaundice [Recovering/Resolving]
  - Hepatitis toxic [Recovering/Resolving]

NARRATIVE: CASE EVENT DATE: 20180924
